FAERS Safety Report 12670800 (Version 6)
Quarter: 2019Q1

REPORT INFORMATION
  Report Type: Spontaneous
  Country: US (occurrence: US)
  Receive Date: 20160822
  Receipt Date: 20190206
  Transmission Date: 20190417
  Serious: Yes (Other)
  Sender: FDA-Public Use
  Company Number: US-JAZZ-2016-US-006149

PATIENT
  Sex: Male

DRUGS (16)
  1. CAPTOPRIL. [Concomitant]
     Active Substance: CAPTOPRIL
  2. ZYPREXA [Concomitant]
     Active Substance: OLANZAPINE
  3. AMBIEN [Concomitant]
     Active Substance: ZOLPIDEM TARTRATE
  4. AXIRON [Concomitant]
     Active Substance: TESTOSTERONE
  5. XYREM [Suspect]
     Active Substance: SODIUM OXYBATE
     Indication: NARCOLEPSY
     Dosage: 4.5G, BID
     Route: 048
     Dates: start: 200810, end: 2012
  6. XYREM [Suspect]
     Active Substance: SODIUM OXYBATE
     Indication: CATAPLEXY
     Dosage: 4.5G, BID
     Route: 048
     Dates: start: 201411
  7. TRILEPTAL [Concomitant]
     Active Substance: OXCARBAZEPINE
  8. TRAZODONE HYDROCHLORIDE. [Concomitant]
     Active Substance: TRAZODONE HYDROCHLORIDE
  9. LISINOPRIL. [Concomitant]
     Active Substance: LISINOPRIL
  10. TESTIM [Concomitant]
     Active Substance: TESTOSTERONE
  11. ADDERALL [Concomitant]
     Active Substance: AMPHETAMINE ASPARTATE\AMPHETAMINE SULFATE\DEXTROAMPHETAMINE SACCHARATE\DEXTROAMPHETAMINE SULFATE
  12. ABILIFY [Concomitant]
     Active Substance: ARIPIPRAZOLE
  13. DEXILANT [Concomitant]
     Active Substance: DEXLANSOPRAZOLE
  14. LAMICTAL [Concomitant]
     Active Substance: LAMOTRIGINE
  15. VYVANSE [Concomitant]
     Active Substance: LISDEXAMFETAMINE DIMESYLATE
  16. SUBOXONE [Concomitant]
     Active Substance: BUPRENORPHINE HYDROCHLORIDE\NALOXONE HYDROCHLORIDE

REACTIONS (11)
  - Narcolepsy [Unknown]
  - Concussion [Unknown]
  - Feeling abnormal [Not Recovered/Not Resolved]
  - Head injury [Unknown]
  - Surgery [Unknown]
  - Restlessness [Unknown]
  - Anxiety [Unknown]
  - Pain [Unknown]
  - Cataplexy [Unknown]
  - Fall [Recovered/Resolved]
  - Muscular weakness [Not Recovered/Not Resolved]
